FAERS Safety Report 21312511 (Version 1)
Quarter: 2022Q3

REPORT INFORMATION
  Report Type: Spontaneous
  Country: ES (occurrence: ES)
  Receive Date: 20220909
  Receipt Date: 20220909
  Transmission Date: 20221026
  Serious: Yes (Other)
  Sender: FDA-Public Use
  Company Number: None

PATIENT
  Age: 64 Year
  Sex: Female

DRUGS (1)
  1. HYRIMOZ [Suspect]
     Active Substance: ADALIMUMAB-ADAZ
     Indication: SAPHO syndrome
     Dosage: 40 MG, Q2W (40 MG / 14 DIAS)
     Route: 058
     Dates: start: 20210601, end: 20210927

REACTIONS (1)
  - Necrotising bronchiolitis [Recovered/Resolved]

NARRATIVE: CASE EVENT DATE: 20210928
